FAERS Safety Report 7403581-9 (Version None)
Quarter: 2011Q2

REPORT INFORMATION
  Report Type: 
  Country: None (occurrence: None)
  Receive Date: 20110408
  Receipt Date: 20110405
  Transmission Date: 20111010
  Serious: Yes (Other)
  Sender: FDA-Public Use
  Company Number: US-PFIZER INC-2011040300

PATIENT
  Sex: Female

DRUGS (1)
  1. CHANTIX [Suspect]
     Dosage: UNK

REACTIONS (6)
  - RASH PRURITIC [None]
  - EYE SWELLING [None]
  - ALOPECIA [None]
  - SWELLING FACE [None]
  - EXFOLIATIVE RASH [None]
  - SKIN DISCOLOURATION [None]
